FAERS Safety Report 7972091-2 (Version None)
Quarter: 2011Q4

REPORT INFORMATION
  Report Type: 
  Country: None (occurrence: None)
  Receive Date: 20111212
  Receipt Date: 20111130
  Transmission Date: 20120403
  Serious: Yes (Other)
  Sender: FDA-Public Use
  Company Number: CA-COVIDIEN/TYCO HEALTHCARE/MALLINCKRODT-T201102833

PATIENT
  Age: 25 Year
  Sex: Female

DRUGS (1)
  1. SODIUM IODIDE I-131 SOLUTION [Suspect]
     Indication: METASTASES TO LUNG
     Dosage: +/- 37 GBQ

REACTIONS (1)
  - DACRYOSTENOSIS ACQUIRED [None]
